FAERS Safety Report 9923958 (Version 2)
Quarter: 2014Q1

REPORT INFORMATION
  Report Type: Spontaneous
  Country: US (occurrence: US)
  Receive Date: 20140225
  Receipt Date: 20140225
  Transmission Date: 20141002
  Serious: No
  Sender: FDA-Public Use
  Company Number: US-GILEAD-2014-0094766

PATIENT
  Sex: Female

DRUGS (3)
  1. SOVALDI [Suspect]
     Indication: HEPATITIS C
     Dosage: UNK
     Route: 065
  2. RIBAVIRIN [Concomitant]
     Dosage: UNK
     Route: 065
  3. INTERFERON [Concomitant]
     Dosage: UNK
     Route: 065

REACTIONS (2)
  - Skin ulcer [Unknown]
  - Rash [Unknown]
